FAERS Safety Report 13497848 (Version 1)
Quarter: 2017Q2

REPORT INFORMATION
  Report Type: Spontaneous
  Country: US (occurrence: US)
  Receive Date: 20170428
  Receipt Date: 20170428
  Transmission Date: 20170830
  Serious: Yes (Other)
  Sender: FDA-Public Use
  Company Number: US-MALLINCKRODT-T201701792

PATIENT
  Age: 8 Month
  Sex: Male

DRUGS (1)
  1. H.P. ACTHAR [Suspect]
     Active Substance: CORTICOTROPIN
     Indication: INFANTILE SPASMS
     Dosage: 40 UNITS / 0.5 ML
     Route: 065
     Dates: start: 20170406, end: 20170408

REACTIONS (1)
  - Wound haemorrhage [Unknown]

NARRATIVE: CASE EVENT DATE: 20170407
